FAERS Safety Report 11154693 (Version 2)
Quarter: 2015Q2

REPORT INFORMATION
  Report Type: Report from Study
  Country: US (occurrence: US)
  Receive Date: 20150602
  Receipt Date: 20150629
  Transmission Date: 20150821
  Serious: Yes (Other)
  Sender: FDA-Public Use
  Company Number: PHEH2015US009824

PATIENT
  Age: 45 Year
  Sex: Female
  Weight: 66.21 kg

DRUGS (4)
  1. VICODIN [Concomitant]
     Active Substance: ACETAMINOPHEN\HYDROCODONE BITARTRATE
     Indication: PRODUCT USED FOR UNKNOWN INDICATION
     Route: 065
  2. BACLOFEN. [Concomitant]
     Active Substance: BACLOFEN
     Indication: PRODUCT USED FOR UNKNOWN INDICATION
     Route: 041
     Dates: start: 20130425
  3. GILENYA [Suspect]
     Active Substance: FINGOLIMOD HYDROCHLORIDE
     Indication: MULTIPLE SCLEROSIS
     Dosage: 0.5 MG, QD
     Route: 048
     Dates: start: 2011
  4. CHOLECALCIFEROL [Concomitant]
     Active Substance: CHOLECALCIFEROL
     Indication: PRODUCT USED FOR UNKNOWN INDICATION
     Route: 065

REACTIONS (20)
  - Headache [Unknown]
  - Cystitis [Unknown]
  - Vitamin D deficiency [Unknown]
  - Dizziness [Unknown]
  - Muscular weakness [Unknown]
  - Tremor [Unknown]
  - Vasculitis [Unknown]
  - Neurogenic bladder [Unknown]
  - Nystagmus [Unknown]
  - Bladder disorder [Unknown]
  - Depression [Unknown]
  - Micturition urgency [Unknown]
  - Ophthalmoplegia [Unknown]
  - Loss of proprioception [Unknown]
  - Musculoskeletal stiffness [Unknown]
  - Gait disturbance [Recovering/Resolving]
  - Insomnia [Unknown]
  - Ataxia [Unknown]
  - Hypertonia [Unknown]
  - Dysthymic disorder [Unknown]

NARRATIVE: CASE EVENT DATE: 20131003
